FAERS Safety Report 19083626 (Version 2)
Quarter: 2021Q2

REPORT INFORMATION
  Report Type: Spontaneous
  Country: JP (occurrence: JP)
  Receive Date: 20210401
  Receipt Date: 20210412
  Transmission Date: 20210717
  Serious: Yes (Other)
  Sender: FDA-Public Use
  Company Number: JP-OTSUKA-2021_009400

PATIENT
  Sex: Female

DRUGS (1)
  1. ABILIFY [Suspect]
     Active Substance: ARIPIPRAZOLE
     Indication: PRODUCT USED FOR UNKNOWN INDICATION
     Dosage: UNK
     Route: 048

REACTIONS (7)
  - Sensation of blood flow [Unknown]
  - Feeling abnormal [Unknown]
  - Pain in extremity [Unknown]
  - Visual impairment [Unknown]
  - Swelling [Unknown]
  - Skin fissures [Unknown]
  - Cerebral ischaemia [Unknown]
